FAERS Safety Report 5619204-5 (Version None)
Quarter: 2008Q1

REPORT INFORMATION
  Report Type: 
  Country: None (occurrence: None)
  Receive Date: 20080205
  Receipt Date: 20080124
  Transmission Date: 20080703
  Serious: Yes (Hospitalization)
  Sender: FDA-Public Use
  Company Number: 2007BI024057

PATIENT
  Age: 31 Year
  Sex: Female
  Weight: 60 kg

DRUGS (1)
  1. AVONEX [Suspect]
     Indication: RELAPSING-REMITTING MULTIPLE SCLEROSIS
     Dosage: 30 UG; QW; IM
     Route: 030
     Dates: start: 20050901

REACTIONS (9)
  - ACTIVATED PARTIAL THROMBOPLASTIN TIME SHORTENED [None]
  - APPENDIX DISORDER [None]
  - BLOOD SODIUM DECREASED [None]
  - DIARRHOEA [None]
  - GASTROENTERITIS VIRAL [None]
  - HAEMATOCRIT DECREASED [None]
  - HYPERTROPHY [None]
  - LABORATORY TEST ABNORMAL [None]
  - RED BLOOD CELL COUNT DECREASED [None]
